FAERS Safety Report 7823618-2 (Version None)
Quarter: 2011Q4

REPORT INFORMATION
  Report Type: 
  Country: None (occurrence: None)
  Receive Date: 20111019
  Receipt Date: 20111014
  Transmission Date: 20120403
  Serious: Yes (Hospitalization, Other)
  Sender: FDA-Public Use
  Company Number: US-PFIZER INC-2011054445

PATIENT
  Sex: Male

DRUGS (7)
  1. OXYCODONE [Concomitant]
     Indication: SURGERY
  2. CHANTIX [Suspect]
     Indication: SMOKING CESSATION THERAPY
     Dosage: 1 MG, UNK
     Dates: start: 20080701, end: 20081101
  3. LOPRESSOR [Concomitant]
     Indication: HYPERTENSION
     Dosage: UNK
     Dates: start: 19940101
  4. CYMBALTA [Concomitant]
     Indication: DEPRESSION
     Dosage: UNK
     Dates: start: 20071015
  5. OXYCODONE [Concomitant]
     Indication: BACK PAIN
     Dosage: UNK
     Dates: start: 20010104, end: 20110101
  6. KLONOPIN [Concomitant]
     Indication: ANXIETY
     Dosage: UNK
     Dates: start: 20090723
  7. CHANTIX [Suspect]
     Dosage: 1 MG, UNK
     Dates: start: 20090801, end: 20091001

REACTIONS (4)
  - INTENTIONAL OVERDOSE [None]
  - INJURY [None]
  - SUICIDE ATTEMPT [None]
  - DEPRESSION [None]
